FAERS Safety Report 7567878-4 (Version None)
Quarter: 2011Q2

REPORT INFORMATION
  Report Type: 
  Country: None (occurrence: None)
  Receive Date: 20110623
  Receipt Date: 20110615
  Transmission Date: 20111010
  Serious: Yes (Other)
  Sender: FDA-Public Use
  Company Number: JP-ASTELLAS-2011JP003987

PATIENT
  Age: 54 Year
  Sex: Female

DRUGS (12)
  1. PREDNISOLONE [Concomitant]
     Dosage: 18 MG, UNKNOWN/D
     Route: 065
  2. PREDNISOLONE [Concomitant]
     Dosage: 30 MG, UNKNOWN/D
     Route: 065
  3. METHYLPREDNISOLONE [Concomitant]
     Indication: PROPHYLAXIS AGAINST GRAFT VERSUS HOST DISEASE
     Dosage: 1 MG/KG, UNKNOWN/D
     Route: 065
  4. GANCICLOVIR [Concomitant]
     Indication: CYTOMEGALOVIRUS TEST POSITIVE
     Dosage: 5 MG/KG, UNKNOWN/D
     Route: 065
  5. PREDNISOLONE [Concomitant]
     Dosage: 35 MG, UNKNOWN/D
     Route: 065
  6. ANTILYMPHOCYTE IMMUNOGLOBULIN (RABBIT) [Concomitant]
     Route: 065
  7. PREDNISOLONE [Concomitant]
     Route: 065
  8. FLUDARABINE PHOSPHATE [Concomitant]
     Route: 065
  9. PROGRAF [Suspect]
     Indication: PROPHYLAXIS AGAINST GRAFT VERSUS HOST DISEASE
     Route: 042
  10. BUSULFAN [Concomitant]
     Route: 065
  11. CYTARABINE [Concomitant]
     Route: 065
  12. PREDNISOLONE [Concomitant]
     Dosage: 3 MG, UNKNOWN/D
     Route: 065

REACTIONS (4)
  - CYTOMEGALOVIRUS TEST POSITIVE [None]
  - DRUG INEFFECTIVE [None]
  - ACUTE GRAFT VERSUS HOST DISEASE IN SKIN [None]
  - ESCHERICHIA SEPSIS [None]
